FAERS Safety Report 9425786 (Version 3)
Quarter: 2013Q4

REPORT INFORMATION
  Report Type: Spontaneous
  Country: US (occurrence: US)
  Receive Date: 20130729
  Receipt Date: 20131030
  Transmission Date: 20140711
  Serious: Yes (Other)
  Sender: FDA-Public Use
  Company Number: US-PFIZER INC-2013215996

PATIENT
  Age: 53 Year
  Sex: Female

DRUGS (10)
  1. BOSULIF [Suspect]
     Indication: CHRONIC MYELOID LEUKAEMIA
     Dosage: 500 MG, DAILY
     Route: 048
     Dates: start: 20130719, end: 20130905
  2. ACIPHEX [Concomitant]
     Dosage: 20 MG, DAILY
  3. CYPROHEPTADINE [Concomitant]
     Dosage: 4 MG, 3X/DAY
  4. DICYCLOMINE [Concomitant]
     Dosage: 10 MG, 1X/DAY
  5. METOCLOPRAMIDE [Concomitant]
     Dosage: 10 MG, 1X/DAY BEFORE MEALS
  6. METOLAZONE [Concomitant]
     Dosage: 10 MG, 1X/DAY AFTER MEALS
     Route: 048
  7. NEURONTIN [Concomitant]
     Dosage: 300 MG, 3X/DAY
  8. OXYCODONE [Concomitant]
     Dosage: UNK
  9. HYDROCODONE [Concomitant]
     Dosage: UNK
  10. APA [Concomitant]
     Dosage: UNK

REACTIONS (7)
  - Diarrhoea [Recovered/Resolved]
  - Abdominal pain [Recovering/Resolving]
  - Flatulence [Recovered/Resolved]
  - Fatigue [Recovering/Resolving]
  - Pain [Unknown]
  - Hypotension [Unknown]
  - Abdominal distension [Recovered/Resolved]
